FAERS Safety Report 5522805-6 (Version None)
Quarter: 2007Q4

REPORT INFORMATION
  Report Type: 
  Country: None (occurrence: None)
  Receive Date: 20071120
  Receipt Date: 20071116
  Transmission Date: 20080405
  Serious: Yes (Death)
  Sender: FDA-Public Use
  Company Number: US-GENENTECH-243467

PATIENT
  Age: 66 Year
  Sex: Female

DRUGS (24)
  1. RITUXAN [Suspect]
     Indication: CHRONIC LYMPHOCYTIC LEUKAEMIA
     Dosage: 50 MG/M2, UNK
     Route: 042
  2. RITUXAN [Suspect]
     Dosage: 325 MG/M2, UNK
     Route: 042
  3. RITUXAN [Suspect]
     Dosage: 375 MG/M2, UNK
     Route: 042
  4. CAMPATH [Suspect]
     Indication: CHRONIC LYMPHOCYTIC LEUKAEMIA
     Dosage: 3 MG, UNK
     Route: 058
     Dates: start: 20061030
  5. CAMPATH [Suspect]
     Dosage: 10 MG, UNK
     Route: 058
  6. CAMPATH [Suspect]
     Dosage: 30 MG, UNK
     Route: 058
  7. FLUDARA [Suspect]
     Indication: CHRONIC LYMPHOCYTIC LEUKAEMIA
     Dosage: 25 MG/M2, UNK
     Route: 042
  8. BENADRYL [Concomitant]
     Indication: PREMEDICATION
     Dosage: 50 MG, UNK
  9. ACETAMINOPHEN [Concomitant]
     Indication: PREMEDICATION
     Dosage: 650 MG, UNK
  10. CO-TRIMAZOLE [Concomitant]
     Indication: DRUG USE FOR UNKNOWN INDICATION
     Dosage: UNK, BID
     Route: 048
  11. QUINAPRIL HCL [Concomitant]
     Indication: DRUG USE FOR UNKNOWN INDICATION
  12. ACYCLOVIR [Concomitant]
     Indication: DRUG USE FOR UNKNOWN INDICATION
  13. LORAZEPAM [Concomitant]
     Indication: DRUG USE FOR UNKNOWN INDICATION
  14. ALLOPURINOL [Concomitant]
     Indication: DRUG USE FOR UNKNOWN INDICATION
  15. OLMESARTAN MEDOXOMIL [Concomitant]
     Indication: DRUG USE FOR UNKNOWN INDICATION
  16. CALCIUM [Concomitant]
     Indication: DRUG USE FOR UNKNOWN INDICATION
  17. VITAMIN D [Concomitant]
     Indication: DRUG USE FOR UNKNOWN INDICATION
  18. METFORMIN HYDROCHLORIDE [Concomitant]
     Indication: DRUG USE FOR UNKNOWN INDICATION
  19. GLYBURIDE [Concomitant]
     Indication: DRUG USE FOR UNKNOWN INDICATION
  20. CHONDROITIN SULFATE [Concomitant]
     Indication: DRUG USE FOR UNKNOWN INDICATION
  21. GLUCOSAMINE HYDROCHLORIDE [Concomitant]
     Indication: DRUG USE FOR UNKNOWN INDICATION
  22. SPIRONOLACTONE [Concomitant]
     Indication: DRUG USE FOR UNKNOWN INDICATION
  23. ATENOLOL [Concomitant]
     Indication: DRUG USE FOR UNKNOWN INDICATION
  24. FENOFIBRATE [Concomitant]
     Indication: DRUG USE FOR UNKNOWN INDICATION

REACTIONS (1)
  - MENINGITIS [None]
